FAERS Safety Report 6464034-8 (Version None)
Quarter: 2009Q4

REPORT INFORMATION
  Report Type: 
  Country: None (occurrence: None)
  Receive Date: 20091201
  Receipt Date: 20091117
  Transmission Date: 20100525
  Serious: No
  Sender: FDA-Public Use
  Company Number: US-B.I. PHARMACEUTICALS,INC./RIDGEFIELD-2009-BP-12292BP

PATIENT
  Sex: Male

DRUGS (13)
  1. MIRAPEX [Suspect]
     Indication: RESTLESS LEGS SYNDROME
     Dosage: 0.125 MG
     Route: 048
  2. SINEMET [Concomitant]
  3. AMARYL EQ [Concomitant]
     Dosage: 1 MG
  4. ACTOS EQ [Concomitant]
     Dosage: 30 MG
  5. GLUCOPHAGE EQ [Concomitant]
     Dosage: 1000 MG
  6. UROXATRAL [Concomitant]
     Dosage: 10 MG
  7. VYTORIN EQ [Concomitant]
     Dosage: 10 MG
  8. VASOTEC EQ [Concomitant]
     Dosage: 5 MG
  9. FERROUS SULFATE TAB [Concomitant]
     Dosage: 975 MG
  10. VIT C [Concomitant]
     Dosage: 1500 MG
  11. VITAMIN B-12 [Concomitant]
     Dosage: 1000 MCG
  12. COLACE [Concomitant]
     Dosage: 100 MG
  13. VIT D [Concomitant]

REACTIONS (1)
  - DRUG INEFFECTIVE [None]
